FAERS Safety Report 18480644 (Version 1)
Quarter: 2020Q4

REPORT INFORMATION
  Report Type: Spontaneous
  Country: US (occurrence: US)
  Receive Date: 20201109
  Receipt Date: 20201109
  Transmission Date: 20210114
  Serious: Yes (Other)
  Sender: FDA-Public Use
  Company Number: None

PATIENT
  Age: 46 Year
  Sex: Female
  Weight: 101.6 kg

DRUGS (14)
  1. PRILOSEC 40MG DAILY [Concomitant]
  2. LASIX 80MG DAILY [Concomitant]
  3. DIFLUCAN 100MG DAILY [Concomitant]
  4. FERAHEME [Suspect]
     Active Substance: FERUMOXYTOL NON-STOICHIOMETRIC MAGNETITE
     Indication: IRON DEFICIENCY ANAEMIA
     Dosage: ?          OTHER FREQUENCY:ONCE;?
     Route: 041
     Dates: start: 20200905
  5. KLOR-CON 40MEQ DAILY [Concomitant]
  6. BREO-ELLIPTA 100-25MCG/INH DAILY [Concomitant]
  7. METHOTREXATE 40MG WEEKLY [Concomitant]
  8. NORTRIPTYLINE 50MG DAILY [Concomitant]
  9. GABAPENTIN 300MG NIGHTLY [Concomitant]
  10. CYMBALTA 60MG DAILY [Concomitant]
  11. METFORMIN 500MG DAILY [Concomitant]
  12. REMICADE 100MG QMONTH [Concomitant]
  13. PREDNISONE 30MG BID [Concomitant]
  14. FERROUS SULPHATE 325MG DAILY [Concomitant]

REACTIONS (2)
  - Back pain [None]
  - Chest pain [None]

NARRATIVE: CASE EVENT DATE: 20201106
